FAERS Safety Report 4761108-4 (Version None)
Quarter: 2005Q3

REPORT INFORMATION
  Report Type: 
  Country: None (occurrence: None)
  Receive Date: 20050901
  Receipt Date: 20050506
  Transmission Date: 20060218
  Serious: Yes (Hospitalization)
  Sender: FDA-Public Use
  Company Number: 2005FR-00246

PATIENT
  Age: 75 Year
  Sex: Female

DRUGS (8)
  1. ASPIRIN [Suspect]
     Indication: PROPHYLAXIS
     Dosage: 75 MG OD ORAL
     Route: 048
     Dates: end: 20050418
  2. METFORMIN [Concomitant]
  3. GLICLAZIDE [Concomitant]
  4. PRAVASTATIN [Concomitant]
  5. TRANDOLAPRIL [Concomitant]
  6. VERAPAMIL [Concomitant]
  7. ROSIGLITAZONE [Concomitant]
  8. PARACETAMOL [Concomitant]

REACTIONS (2)
  - DUODENAL ULCER [None]
  - HAEMOGLOBIN DECREASED [None]
